FAERS Safety Report 12393319 (Version 1)
Quarter: 2016Q2

REPORT INFORMATION
  Report Type: Spontaneous
  Country: US (occurrence: None)
  Receive Date: 20160520
  Receipt Date: 20160520
  Transmission Date: 20160815
  Serious: Yes (Disabling)
  Sender: FDA-Public Use
  Company Number: None

PATIENT
  Age: 58 Year
  Sex: Female
  Weight: 55.34 kg

DRUGS (4)
  1. AGERLYN [Concomitant]
  2. ADVAUR [Concomitant]
  3. HYDRA [Concomitant]
     Active Substance: ISONIAZID
  4. BREO ELLIPTA [Suspect]
     Active Substance: FLUTICASONE FUROATE\VILANTEROL TRIFENATATE
     Indication: CHRONIC OBSTRUCTIVE PULMONARY DISEASE
     Dosage: IN THE MORNING INHALATION
     Route: 055
     Dates: start: 20151224, end: 20160224

REACTIONS (3)
  - Sinus operation [None]
  - Headache [None]
  - Lung disorder [None]
